FAERS Safety Report 4602802-5 (Version None)
Quarter: 2005Q1

REPORT INFORMATION
  Report Type: 
  Country: None (occurrence: None)
  Receive Date: 20050309
  Receipt Date: 20050107
  Transmission Date: 20050727
  Serious: Yes (Other)
  Sender: FDA-Public Use
  Company Number: US-MERCK-0501USA00668

PATIENT
  Sex: Female

DRUGS (1)
  1. COSOPT [Suspect]
     Route: 047

REACTIONS (1)
  - CORNEAL DISORDER [None]
